FAERS Safety Report 8895530 (Version 2)
Quarter: 2012Q4

REPORT INFORMATION
  Report Type: 
  Country: US (occurrence: US)
  Receive Date: 20121107
  Receipt Date: 20121217
  Transmission Date: 20130627
  Serious: No
  Sender: FDA-Public Use
  Company Number: US-PFIZER INC-2012277310

PATIENT
  Age: 73 Year
  Sex: Female
  Weight: 65.76 kg

DRUGS (3)
  1. LYRICA [Suspect]
     Indication: NERVE DAMAGE
     Dosage: 50 mg, daily
     Route: 048
     Dates: start: 2011
  2. LYRICA [Suspect]
     Dosage: 75 mg, daily
     Route: 048
  3. LYRICA [Suspect]
     Dosage: 25 mg, daily

REACTIONS (3)
  - Erythema [Unknown]
  - Feeling hot [Unknown]
  - Joint swelling [Not Recovered/Not Resolved]
